FAERS Safety Report 17158057 (Version 1)
Quarter: 2019Q4

REPORT INFORMATION
  Report Type: Spontaneous
  Country: US (occurrence: US)
  Receive Date: 20191122
  Receipt Date: 20191122
  Transmission Date: 20200122
  Serious: No
  Sender: FDA-Public Use
  Company Number: None

PATIENT
  Sex: Female

DRUGS (1)
  1. LUPANETA PACK [Suspect]
     Active Substance: LEUPROLIDE ACETATE\NORETHINDRONE ACETATE
     Indication: MALAISE
     Dosage: ?          OTHER ROUTE:IM/PO  3.75/5 MG?
     Dates: start: 201908

REACTIONS (4)
  - Chest pain [None]
  - Nausea [None]
  - Arthralgia [None]
  - Migraine [None]
